FAERS Safety Report 8433577-X (Version None)
Quarter: 2012Q2

REPORT INFORMATION
  Report Type: 
  Country: None (occurrence: None)
  Receive Date: 20120613
  Receipt Date: 20120612
  Transmission Date: 20120825
  Serious: No
  Sender: FDA-Public Use
  Company Number: US-PFIZER INC-2012141809

PATIENT
  Sex: Male
  Weight: 97.506 kg

DRUGS (3)
  1. PEPCID [Concomitant]
     Indication: GASTRIC BYPASS
     Dosage: UNK, 2X/DAY
  2. FLOMAX [Concomitant]
     Indication: GASTRIC BYPASS
     Dosage: UNK, 1X/DAY
  3. CHANTIX [Suspect]
     Indication: SMOKING CESSATION THERAPY
     Dosage: UNK, 2X/DAY
     Dates: start: 20120401

REACTIONS (1)
  - ABNORMAL DREAMS [None]
